FAERS Safety Report 13633030 (Version 2)
Quarter: 2017Q3

REPORT INFORMATION
  Report Type: Report from Study
  Country: DE (occurrence: DE)
  Receive Date: 20170609
  Receipt Date: 20170819
  Transmission Date: 20171127
  Serious: Yes (Hospitalization, Disabling)
  Sender: FDA-Public Use
  Company Number: DE-ROCHE-1946245

PATIENT
  Age: 75 Year
  Sex: Female

DRUGS (2)
  1. METHOTREXATE. [Suspect]
     Active Substance: METHOTREXATE
     Indication: RHEUMATOID ARTHRITIS
     Route: 065
  2. RITUXIMAB. [Suspect]
     Active Substance: RITUXIMAB
     Indication: RHEUMATOID ARTHRITIS
     Route: 042
     Dates: end: 20160830

REACTIONS (6)
  - Nasopharyngitis [Unknown]
  - Keratitis [Recovered/Resolved]
  - Osteoporosis [Unknown]
  - Pulmonary fibrosis [Not Recovered/Not Resolved]
  - Episcleritis [Unknown]
  - Gastroenteritis clostridial [Recovered/Resolved]

NARRATIVE: CASE EVENT DATE: 20161130
